FAERS Safety Report 6983357-7 (Version None)
Quarter: 2010Q3

REPORT INFORMATION
  Report Type: 
  Country: None (occurrence: None)
  Receive Date: 20100914
  Receipt Date: 20100902
  Transmission Date: 20110219
  Serious: Yes (Other)
  Sender: FDA-Public Use
  Company Number: PHHY2010US58355

PATIENT
  Sex: Female

DRUGS (2)
  1. FEMARA [Suspect]
  2. DIOVAN [Suspect]

REACTIONS (2)
  - DIALYSIS [None]
  - RENAL FAILURE CHRONIC [None]
